FAERS Safety Report 5700227-2 (Version None)
Quarter: 2008Q2

REPORT INFORMATION
  Report Type: 
  Country: None (occurrence: None)
  Receive Date: 20080410
  Receipt Date: 20080327
  Transmission Date: 20081010
  Serious: Yes (Other)
  Sender: FDA-Public Use
  Company Number: US-ELI_LILLY_AND_COMPANY-US200803006422

PATIENT
  Sex: Female
  Weight: 65.306 kg

DRUGS (3)
  1. TERIPARATIDE [Suspect]
     Indication: OSTEOPOROSIS
     Dosage: 20 UG, UNK
     Route: 058
     Dates: start: 20060325
  2. CALCIUM [Concomitant]
     Indication: OSTEOPOROSIS
     Dates: start: 20030101
  3. VITAMIN D [Concomitant]
     Indication: OSTEOPOROSIS
     Dates: start: 20030101

REACTIONS (1)
  - BONE SCAN ABNORMAL [None]
